FAERS Safety Report 14108202 (Version 1)
Quarter: 2017Q4

REPORT INFORMATION
  Report Type: Spontaneous
  Country: KR (occurrence: KR)
  Receive Date: 20171019
  Receipt Date: 20171019
  Transmission Date: 20180321
  Serious: Yes (Other)
  Sender: FDA-Public Use
  Company Number: KR-009507513-1710KOR007063

PATIENT
  Age: 43 Year
  Sex: Female
  Weight: 59.5 kg

DRUGS (10)
  1. ALLOPURINOL. [Concomitant]
     Active Substance: ALLOPURINOL
     Indication: PROPHYLAXIS
     Dosage: 100 MG (1 TABLET), ONCE DAILY
     Route: 048
     Dates: start: 20170421, end: 20170711
  2. TARGIN [Concomitant]
     Active Substance: NALOXONE HYDROCHLORIDE\OXYCODONE HYDROCHLORIDE
     Indication: PAIN PROPHYLAXIS
     Dosage: 1 TABLET (20/10MG), THREE TIMES DAY
     Route: 048
     Dates: start: 20170417, end: 20170525
  3. NOXAFIL [Suspect]
     Active Substance: POSACONAZOLE
     Indication: ANTIFUNGAL PROPHYLAXIS
     Dosage: 300 MG, TWICE A DAY
     Route: 048
     Dates: start: 20170421, end: 20170421
  4. NOXAFIL [Suspect]
     Active Substance: POSACONAZOLE
     Dosage: 300 MG, ONCE A DAY
     Route: 048
     Dates: start: 20170422, end: 20170706
  5. URSA TABLETS [Concomitant]
     Indication: PROPHYLAXIS
     Dosage: 200 MG (1 TABLET), THREE TIMES DAY
     Route: 048
     Dates: start: 20170424, end: 20170613
  6. MEBAPENEM [Concomitant]
     Active Substance: MEROPENEM
     Indication: INFECTION PROPHYLAXIS
     Dosage: 1 G, THREE TIMES DAY
     Route: 042
     Dates: start: 20170505, end: 20170718
  7. CYTARABINE. [Concomitant]
     Active Substance: CYTARABINE
     Indication: ACUTE MYELOID LEUKAEMIA
     Dosage: 85 MG, ONCE DAILY
     Route: 042
     Dates: start: 20170421, end: 20170427
  8. LEGALON [Concomitant]
     Active Substance: DIETARY SUPPLEMENT\HERBALS\MILK THISTLE
     Indication: PROPHYLAXIS
     Dosage: 1 CAPSULE, TWICE DAY, STRENGHT: 140
     Route: 048
     Dates: start: 20170424, end: 20170614
  9. SYNTHROID [Concomitant]
     Active Substance: LEVOTHYROXINE SODIUM
     Indication: THYROID CANCER
     Dosage: 0.1 MG (1 TABLET), ONCE DAILY
     Route: 048
  10. ONSETRON [Concomitant]
     Active Substance: ONDANSETRON
     Indication: PROPHYLAXIS OF NAUSEA AND VOMITING
     Dosage: 1 TABLET, TWICE A DAY
     Route: 048
     Dates: start: 20170421, end: 20170531

REACTIONS (3)
  - Enterococcal infection [Recovered/Resolved]
  - Thrombocytopenia [Recovering/Resolving]
  - Nephrotic syndrome [Recovering/Resolving]

NARRATIVE: CASE EVENT DATE: 20170511
